FAERS Safety Report 12493060 (Version 3)
Quarter: 2025Q1

REPORT INFORMATION
  Report Type: Report from Study
  Country: CA (occurrence: CA)
  Receive Date: 20160623
  Receipt Date: 20250108
  Transmission Date: 20250409
  Serious: Yes (Other)
  Sender: TAKEDA
  Company Number: CA-TAKEDA-2016TUS009271

PATIENT
  Age: 61 Year
  Sex: Female

DRUGS (13)
  1. VEDOLIZUMAB [Suspect]
     Active Substance: VEDOLIZUMAB
     Indication: Crohn^s disease
     Dosage: 300 MILLIGRAM, Q4WEEKS
     Dates: start: 20160818
  2. VEDOLIZUMAB [Suspect]
     Active Substance: VEDOLIZUMAB
     Dosage: 300 MILLIGRAM, Q4WEEKS
  3. PANTOPRAZOLE SODIUM [Suspect]
     Active Substance: PANTOPRAZOLE SODIUM
     Indication: Product used for unknown indication
     Dosage: 40 MILLIGRAM, QD
     Dates: start: 1996
  4. PROPRANOLOL [Concomitant]
     Active Substance: PROPRANOLOL HYDROCHLORIDE
     Dosage: 10 MILLIGRAM, BID
     Dates: start: 2001
  5. METFORMIN [Concomitant]
     Active Substance: METFORMIN HYDROCHLORIDE
     Dosage: 500 MILLIGRAM, BID
     Dates: start: 201505
  6. LOMOTIL [Concomitant]
     Active Substance: ATROPINE SULFATE\DIPHENOXYLATE HYDROCHLORIDE
     Dosage: UNK UNK, QD
  7. QUESTRAN [Concomitant]
     Active Substance: CHOLESTYRAMINE
  8. DOXYCYCLINE [Concomitant]
     Active Substance: DOXYCYCLINE
  9. IRON [Concomitant]
     Active Substance: IRON
  10. INNOHEP [Concomitant]
     Active Substance: TINZAPARIN SODIUM
  11. TYLENOL WITH CODEINE [Concomitant]
     Active Substance: ACETAMINOPHEN\CODEINE PHOSPHATE
     Dosage: UNK UNK, BID
  12. B12 [Concomitant]
  13. HULIO [Concomitant]
     Active Substance: ADALIMUMAB-FKJP

REACTIONS (6)
  - Arrhythmia [Unknown]
  - Type 2 diabetes mellitus [Unknown]
  - Arthritis [Recovering/Resolving]
  - Off label use [Unknown]
  - Osteoarthritis [Unknown]
  - Trismus [Unknown]

NARRATIVE: CASE EVENT DATE: 20150501
